FAERS Safety Report 23831455 (Version 1)
Quarter: 2024Q2

REPORT INFORMATION
  Report Type: Spontaneous
  Country: US (occurrence: None)
  Receive Date: 20240507
  Receipt Date: 20240507
  Transmission Date: 20240715
  Serious: Yes (Hospitalization)
  Sender: FDA-Public Use
  Company Number: None

PATIENT
  Age: 42 Year
  Sex: Female
  Weight: 108 kg

DRUGS (2)
  1. LYBALVI [Suspect]
     Active Substance: OLANZAPINE\SAMIDORPHAN L-MALATE
     Dates: start: 20240506, end: 20240506
  2. SUBLOCADE [Suspect]
     Active Substance: BUPRENORPHINE

REACTIONS (6)
  - Malaise [None]
  - Anxiety [None]
  - Muscle spasms [None]
  - Withdrawal syndrome [None]
  - Aggression [None]
  - Abnormal behaviour [None]

NARRATIVE: CASE EVENT DATE: 20240506
